FAERS Safety Report 7591340 (Version 2)
Quarter: 2012Q4

REPORT INFORMATION
  Report Type: 
  Country: US (occurrence: US)
  Receive Date: 20100917
  Receipt Date: 20121121
  Transmission Date: 20130627
  Serious: No
  Sender: FDA-Public Use
  Company Number: US-ASTRAZENECA-2010SE06436

PATIENT
  Age: 57 Year
  Sex: Female

DRUGS (2)
  1. SEROQUEL XR [Suspect]
     Route: 048
     Dates: start: 200908, end: 20100207
  2. DIOVAN HCT [Concomitant]
     Indication: HYPERTENSION

REACTIONS (5)
  - Withdrawal syndrome [Not Recovered/Not Resolved]
  - Panic disorder [Not Recovered/Not Resolved]
  - Nausea [Not Recovered/Not Resolved]
  - Conversion disorder [Unknown]
  - Drug dose omission [Not Recovered/Not Resolved]
